FAERS Safety Report 19868842 (Version 2)
Quarter: 2021Q4

REPORT INFORMATION
  Report Type: Spontaneous
  Country: GR (occurrence: GR)
  Receive Date: 20210922
  Receipt Date: 20211004
  Transmission Date: 20220303
  Serious: Yes (Other)
  Sender: FDA-Public Use
  Company Number: GR-NOVPHSZ-PHHY2019GR025738

PATIENT
  Age: 31 Year
  Sex: Male

DRUGS (9)
  1. IRINOTECAN [Suspect]
     Active Substance: IRINOTECAN
     Indication: Testicular germ cell cancer
     Dosage: UNK
     Route: 065
  2. IRINOTECAN [Suspect]
     Active Substance: IRINOTECAN
     Indication: Adjuvant therapy
  3. GEMCITABINE [Suspect]
     Active Substance: GEMCITABINE
     Indication: Adjuvant therapy
     Dosage: UNK CYCLE
  4. GEMCITABINE [Suspect]
     Active Substance: GEMCITABINE
     Dosage: UNK CYCLE
  5. OXALIPLATIN [Suspect]
     Active Substance: OXALIPLATIN
     Indication: Testicular germ cell cancer
     Dosage: UNK
     Route: 065
  6. OXALIPLATIN [Suspect]
     Active Substance: OXALIPLATIN
     Indication: Adjuvant therapy
  7. PACLITAXEL [Suspect]
     Active Substance: PACLITAXEL
     Indication: Testicular germ cell cancer
     Dosage: UNK
     Route: 065
  8. PACLITAXEL [Suspect]
     Active Substance: PACLITAXEL
     Indication: Adjuvant therapy
  9. TAXOL [Suspect]
     Active Substance: PACLITAXEL
     Indication: Adjuvant therapy
     Dosage: UNK

REACTIONS (3)
  - Teratoma benign [Unknown]
  - Disease progression [Unknown]
  - Malignant neoplasm progression [Unknown]
